FAERS Safety Report 9432530 (Version 2)
Quarter: 2013Q3

REPORT INFORMATION
  Report Type: Report from Study
  Country: US (occurrence: US)
  Receive Date: 20130731
  Receipt Date: 20130905
  Transmission Date: 20140515
  Serious: No
  Sender: FDA-Public Use
  Company Number: PHEH2013US016011

PATIENT
  Age: 75 Year
  Sex: Male

DRUGS (3)
  1. TASIGNA [Suspect]
     Indication: CHRONIC MYELOID LEUKAEMIA
     Dosage: 400 MG, BID
     Route: 048
     Dates: start: 20091009
  2. CARAFATE [Concomitant]
     Dosage: 1 G, UNK
  3. ACIPHEX [Concomitant]
     Dosage: 20 MG, UNK

REACTIONS (1)
  - Muscle strain [Unknown]
